FAERS Safety Report 24215930 (Version 1)
Quarter: 2024Q3

REPORT INFORMATION
  Report Type: Spontaneous
  Country: US (occurrence: None)
  Receive Date: 20240816
  Receipt Date: 20240816
  Transmission Date: 20241017
  Serious: No
  Sender: OREXO
  Company Number: US-ARIS GLOBAL-ORE202401-000001

PATIENT
  Sex: Female

DRUGS (1)
  1. ZUBSOLV [Suspect]
     Active Substance: BUPRENORPHINE HYDROCHLORIDE\NALOXONE HYDROCHLORIDE
     Indication: Drug use disorder
     Dosage: 5/7MG/1.4MG 3 TIMES PER DAY

REACTIONS (3)
  - Withdrawal syndrome [Unknown]
  - Product taste abnormal [Unknown]
  - Product solubility abnormal [Unknown]
